FAERS Safety Report 6758623-0 (Version None)
Quarter: 2010Q2

REPORT INFORMATION
  Report Type: 
  Country: None (occurrence: None)
  Receive Date: 20100607
  Receipt Date: 20100531
  Transmission Date: 20101027
  Serious: Yes (Other)
  Sender: FDA-Public Use
  Company Number: CH-ROCHE-706794

PATIENT
  Age: 53 Year
  Sex: Female

DRUGS (3)
  1. AVASTIN [Suspect]
     Route: 065
  2. CAELYX [Suspect]
     Route: 065
  3. CAELYX [Suspect]
     Route: 065

REACTIONS (1)
  - INTERSTITIAL LUNG DISEASE [None]
